FAERS Safety Report 11335808 (Version 3)
Quarter: 2016Q2

REPORT INFORMATION
  Report Type: Spontaneous
  Country: BR (occurrence: BR)
  Receive Date: 20150804
  Receipt Date: 20160428
  Transmission Date: 20160815
  Serious: Yes (Other)
  Sender: FDA-Public Use
  Company Number: BR-SA-2015SA113633

PATIENT
  Age: 34 Year
  Sex: Female

DRUGS (10)
  1. TAXOTERE [Suspect]
     Active Substance: DOCETAXEL
     Indication: BREAST CANCER
     Dosage: ROUTE:INFUSION
     Dates: start: 20150624, end: 20150624
  2. TAXOTERE [Suspect]
     Active Substance: DOCETAXEL
     Indication: BREAST CANCER
     Dosage: ROUTE:INFUSION
     Dates: start: 20150715, end: 20150715
  3. POLARAMINE [Concomitant]
     Active Substance: DEXCHLORPHENIRAMINE MALEATE
     Dosage: STRENGTH: 2 MG
     Route: 048
  4. CYCLOPHOSPHAMIDE. [Concomitant]
     Active Substance: CYCLOPHOSPHAMIDE
     Dates: start: 20150603
  5. DECADRON [Concomitant]
     Active Substance: DEXAMETHASONE
  6. ANTAK [Concomitant]
     Active Substance: RANITIDINE HYDROCHLORIDE
     Dosage: STRENGTH: 50 MG
  7. CYCLOPHOSPHAMIDE. [Concomitant]
     Active Substance: CYCLOPHOSPHAMIDE
     Dates: start: 20150715
  8. TAXOTERE [Suspect]
     Active Substance: DOCETAXEL
     Indication: BREAST CANCER
     Dosage: ROUTE:INFUSION
     Dates: start: 20150603, end: 20150603
  9. KYTRIL [Concomitant]
     Active Substance: GRANISETRON HYDROCHLORIDE
     Dosage: STRENGTH: 3 MG
  10. CYCLOPHOSPHAMIDE. [Concomitant]
     Active Substance: CYCLOPHOSPHAMIDE
     Route: 042
     Dates: start: 20150624

REACTIONS (12)
  - Chest pain [Recovered/Resolved]
  - Headache [Recovered/Resolved]
  - Burning sensation [Recovered/Resolved]
  - Cyanosis [Recovered/Resolved]
  - Dyspnoea [Recovered/Resolved]
  - Flushing [Recovered/Resolved]
  - Flushing [Recovered/Resolved]
  - Back pain [Recovered/Resolved]
  - Abdominal pain [Recovered/Resolved]
  - Chest discomfort [Recovered/Resolved]
  - Paraesthesia oral [Recovered/Resolved]
  - Oxygen saturation decreased [Recovered/Resolved]

NARRATIVE: CASE EVENT DATE: 20150603
